FAERS Safety Report 11992563 (Version 1)
Quarter: 2016Q1

REPORT INFORMATION
  Report Type: Spontaneous
  Country: None (occurrence: None)
  Receive Date: 20160202
  Receipt Date: 20160202
  Transmission Date: 20160526
  Serious: Yes (Disabling)
  Sender: FDA-Public Use
  Company Number: None

PATIENT
  Age: 73 Year
  Sex: Male
  Weight: 90.72 kg

DRUGS (5)
  1. UBIQUINOL [Concomitant]
     Active Substance: UBIQUINOL
  2. CIALIS [Suspect]
     Active Substance: TADALAFIL
     Indication: BENIGN PROSTATIC HYPERPLASIA
     Dosage: TAKEN BY MOUTH
     Route: 048
     Dates: start: 20131120, end: 20151118
  3. COQ10 [Concomitant]
     Active Substance: UBIDECARENONE
  4. VITAMIN C [Concomitant]
     Active Substance: ASCORBIC ACID
  5. OMEGA 3 [Concomitant]
     Active Substance: OMEGA-3 FATTY ACIDS

REACTIONS (4)
  - Amnesia [None]
  - Irritable bowel syndrome [None]
  - Epilepsy [None]
  - Cognitive disorder [None]
